FAERS Safety Report 20847167 (Version 1)
Quarter: 2022Q2

REPORT INFORMATION
  Report Type: Spontaneous
  Country: US (occurrence: US)
  Receive Date: 20220519
  Receipt Date: 20220519
  Transmission Date: 20220721
  Serious: Yes (Hospitalization)
  Sender: FDA-Public Use
  Company Number: US-NOVOPROD-917844

PATIENT
  Sex: Female

DRUGS (7)
  1. NOVOLOG [Suspect]
     Active Substance: INSULIN ASPART
     Dosage: UNK (DOSE INCREASED TO THREE TIMES A DAY SLIDING SCALE WITH MEALS)
     Route: 058
  2. NOVOLOG [Suspect]
     Active Substance: INSULIN ASPART
     Indication: Diabetes mellitus
     Dosage: UNK
     Route: 058
  3. TRESIBA [Suspect]
     Active Substance: INSULIN DEGLUDEC
     Indication: Diabetes mellitus
     Dosage: 78 IU, QD
     Route: 058
  4. TRESIBA [Suspect]
     Active Substance: INSULIN DEGLUDEC
     Dosage: 45 IU, BID
     Route: 058
  5. TRESIBA [Suspect]
     Active Substance: INSULIN DEGLUDEC
     Dosage: 35 IU, BID (WORKING IT TWO UNITS A DAY EVERY 3 DAYS)
     Route: 058
  6. OZEMPIC [Concomitant]
     Active Substance: SEMAGLUTIDE
     Indication: Diabetes mellitus
     Dosage: UNK
     Route: 058
  7. FARXIGA [Concomitant]
     Active Substance: DAPAGLIFLOZIN PROPANEDIOL
     Indication: Product used for unknown indication
     Dosage: UNK
     Route: 065

REACTIONS (3)
  - Blood triglycerides increased [Unknown]
  - Diabetes mellitus inadequate control [Not Recovered/Not Resolved]
  - Blood ketone body present [Not Recovered/Not Resolved]
